FAERS Safety Report 9178548 (Version 2)
Quarter: 2013Q1

REPORT INFORMATION
  Report Type: Report from Study
  Country: DE (occurrence: DE)
  Receive Date: 20130321
  Receipt Date: 20130322
  Transmission Date: 20140127
  Serious: Yes (Hospitalization)
  Sender: FDA-Public Use
  Company Number: DE-ROCHE-1203923

PATIENT
  Age: 26 Year
  Sex: Female
  Weight: 63 kg

DRUGS (1)
  1. TOCILIZUMAB [Suspect]
     Indication: RHEUMATOID ARTHRITIS
     Route: 042
     Dates: start: 20120620

REACTIONS (2)
  - Tonsillar hypertrophy [Recovered/Resolved]
  - Chronic tonsillitis [Unknown]
